FAERS Safety Report 8378985-0 (Version None)
Quarter: 2012Q2

REPORT INFORMATION
  Report Type: 
  Country: None (occurrence: None)
  Receive Date: 20120522
  Receipt Date: 20120522
  Transmission Date: 20120825
  Serious: Yes (Other)
  Sender: FDA-Public Use
  Company Number: None

PATIENT
  Sex: Female
  Weight: 108.8633 kg

DRUGS (1)
  1. LEFLUNOMIDE [Suspect]
     Indication: PAIN
     Dosage: 10MG 1 DAILY
     Dates: start: 20120313, end: 20120316

REACTIONS (16)
  - GAIT DISTURBANCE [None]
  - BACK PAIN [None]
  - FATIGUE [None]
  - PRURITUS [None]
  - VISUAL IMPAIRMENT [None]
  - MUSCLE SPASMS [None]
  - ARTHRALGIA [None]
  - DIZZINESS [None]
  - DECREASED APPETITE [None]
  - MYALGIA [None]
  - ASTHENIA [None]
  - INFECTION [None]
  - NAUSEA [None]
  - COUGH [None]
  - CONTUSION [None]
  - DYSPNOEA [None]
